FAERS Safety Report 9974944 (Version 1)
Quarter: 2014Q1

REPORT INFORMATION
  Report Type: Spontaneous
  Country: US (occurrence: US)
  Receive Date: 20140306
  Receipt Date: 20140306
  Transmission Date: 20141002
  Serious: No
  Sender: FDA-Public Use
  Company Number: US-ABBVIE-13P-163-1160012-00

PATIENT
  Sex: Female
  Weight: 55.84 kg

DRUGS (6)
  1. HUMIRA [Suspect]
     Indication: COLITIS ULCERATIVE
     Dosage: LOADING DOSE
     Route: 058
     Dates: start: 201307, end: 201307
  2. HUMIRA [Suspect]
     Dosage: SECOND DOSE
     Route: 058
  3. HUMIRA [Suspect]
     Dates: start: 2013, end: 20131016
  4. LIALDA [Concomitant]
     Indication: COLITIS ULCERATIVE
  5. FLORAGEN [Concomitant]
     Indication: VITAMIN SUPPLEMENTATION
  6. ADVAIR [Concomitant]
     Indication: BRONCHOSPASM

REACTIONS (2)
  - Dizziness [Not Recovered/Not Resolved]
  - Dizziness [Not Recovered/Not Resolved]
